FAERS Safety Report 21713468 (Version 1)
Quarter: 2022Q4

REPORT INFORMATION
  Report Type: Spontaneous
  Country: CN (occurrence: CN)
  Receive Date: 20221212
  Receipt Date: 20221212
  Transmission Date: 20230113
  Serious: Yes (Other)
  Sender: FDA-Public Use
  Company Number: CN-JNJFOC-20221221148

PATIENT
  Age: 30 Day
  Sex: Male
  Weight: 1.18 kg

DRUGS (3)
  1. CHILDRENS MOTRIN [Suspect]
     Active Substance: IBUPROFEN
     Indication: Neonatal respiratory distress syndrome
     Route: 048
     Dates: start: 20221030, end: 20221101
  2. CHILDRENS MOTRIN [Suspect]
     Active Substance: IBUPROFEN
     Route: 048
     Dates: start: 20221030, end: 20221101
  3. CHILDRENS MOTRIN [Suspect]
     Active Substance: IBUPROFEN
     Route: 048
     Dates: start: 20221030, end: 20221101

REACTIONS (1)
  - Oliguria [Recovered/Resolved]

NARRATIVE: CASE EVENT DATE: 20221031
